FAERS Safety Report 13819504 (Version 2)
Quarter: 2018Q1

REPORT INFORMATION
  Report Type: Report from Study
  Country: US (occurrence: US)
  Receive Date: 20170731
  Receipt Date: 20180201
  Transmission Date: 20180508
  Serious: No
  Sender: FDA-Public Use
  Company Number: US-EXELIXIS-CABO-17009208

PATIENT
  Sex: Male
  Weight: 66.21 kg

DRUGS (20)
  1. HYDROMORPHONE [Concomitant]
     Active Substance: HYDROMORPHONE
  2. TYLENOL [Concomitant]
     Active Substance: ACETAMINOPHEN
  3. IBUPROFEN. [Concomitant]
     Active Substance: IBUPROFEN
  4. CABOMETYX [Suspect]
     Active Substance: CABOZANTINIB S-MALATE
     Indication: RENAL CELL CARCINOMA
     Dosage: 60 MG, QD
     Route: 048
     Dates: start: 20170419
  5. CALCITRIOL. [Concomitant]
     Active Substance: CALCITRIOL
  6. ATENOLOL. [Concomitant]
     Active Substance: ATENOLOL
  7. TAMSULOSIN [Concomitant]
     Active Substance: TAMSULOSIN
  8. GUAIFENESIN. [Concomitant]
     Active Substance: GUAIFENESIN
  9. RENAGEL [Concomitant]
     Active Substance: SEVELAMER HYDROCHLORIDE
  10. BENZONATATE. [Concomitant]
     Active Substance: BENZONATATE
  11. CALCIUM [Concomitant]
     Active Substance: CALCIUM
  12. POLYETHYLENE GLYCOL [Concomitant]
     Active Substance: POLYETHYLENE GLYCOLS
  13. OPDIVO [Concomitant]
     Active Substance: NIVOLUMAB
  14. LIDOCAINE. [Concomitant]
     Active Substance: LIDOCAINE
  15. OXYCODONE [Concomitant]
     Active Substance: OXYCODONE
  16. IPRATROPIUM BROMIDE. [Concomitant]
     Active Substance: IPRATROPIUM BROMIDE
  17. NOVOLOG [Concomitant]
     Active Substance: INSULIN ASPART
  18. ALBUTEROL. [Concomitant]
     Active Substance: ALBUTEROL
  19. LIDOCAINE PRILOCAINE BIOGARAN [Concomitant]
  20. LANTUS [Concomitant]
     Active Substance: INSULIN GLARGINE

REACTIONS (1)
  - Flatulence [Unknown]
